FAERS Safety Report 4917206-5 (Version None)
Quarter: 2006Q1

REPORT INFORMATION
  Report Type: 
  Country: None (occurrence: None)
  Receive Date: 20060221
  Receipt Date: 20060217
  Transmission Date: 20060701
  Serious: Yes (Other)
  Sender: FDA-Public Use
  Company Number: US-GLAXOSMITHKLINE-A0594117A

PATIENT
  Age: 24 Year
  Sex: Male

DRUGS (1)
  1. COMMIT [Suspect]
     Dosage: 4MG UNKNOWN
     Dates: start: 20060213, end: 20060215

REACTIONS (3)
  - EPIGLOTTITIS [None]
  - PHARYNGEAL OEDEMA [None]
  - PHARYNGOLARYNGEAL PAIN [None]
